FAERS Safety Report 6533305-9 (Version None)
Quarter: 2010Q1

REPORT INFORMATION
  Report Type: 
  Country: None (occurrence: None)
  Receive Date: 20100111
  Receipt Date: 20091207
  Transmission Date: 20100710
  Serious: Yes (Hospitalization, Disabling, Other)
  Sender: FDA-Public Use
  Company Number: US-MERCK-0910USA01177

PATIENT
  Age: 61 Year
  Sex: Female
  Weight: 61 kg

DRUGS (9)
  1. FOSAMAX [Suspect]
     Indication: OSTEOPOROSIS
     Route: 048
     Dates: start: 19990501, end: 20020914
  2. FOSAMAX [Suspect]
     Route: 048
     Dates: start: 20020901, end: 20070201
  3. FOSAMAX [Suspect]
     Indication: OSTEOPENIA
     Route: 048
     Dates: start: 19990501, end: 20020914
  4. FOSAMAX [Suspect]
     Route: 048
     Dates: start: 20020901, end: 20070201
  5. CALCIUM (UNSPECIFIED) [Concomitant]
     Indication: OSTEOPOROSIS
     Route: 065
  6. CALCIUM (UNSPECIFIED) [Concomitant]
     Indication: OSTEOPENIA
     Route: 065
  7. VITAMIN D (UNSPECIFIED) [Concomitant]
     Indication: OSTEOPENIA
     Route: 065
  8. VITAMIN D (UNSPECIFIED) [Concomitant]
     Indication: OSTEOPOROSIS
     Route: 065
  9. PRILOSEC [Suspect]
     Route: 065

REACTIONS (34)
  - ACQUIRED OESOPHAGEAL WEB [None]
  - ANAEMIA [None]
  - ANKLE FRACTURE [None]
  - ANXIETY [None]
  - BLEPHARITIS [None]
  - BREAST CANCER STAGE II [None]
  - BRONCHIAL HYPERREACTIVITY [None]
  - CALCIUM METABOLISM DISORDER [None]
  - CONTUSION [None]
  - DIARRHOEA [None]
  - FALL [None]
  - FEMUR FRACTURE [None]
  - GASTROOESOPHAGEAL REFLUX DISEASE [None]
  - HAEMATOMA [None]
  - HYPERCALCAEMIA [None]
  - HYPERLIPIDAEMIA [None]
  - HYPERSENSITIVITY [None]
  - HYPERTENSION [None]
  - HYPOKALAEMIA [None]
  - IRRITABLE BOWEL SYNDROME [None]
  - LOW TURNOVER OSTEOPATHY [None]
  - METASTASES TO LYMPH NODES [None]
  - NASAL CONGESTION [None]
  - OESOPHAGEAL OBSTRUCTION [None]
  - OSTEOPOROSIS [None]
  - PANCREATITIS [None]
  - PLEURISY [None]
  - PNEUMONIA [None]
  - PULMONARY FIBROSIS [None]
  - ROTATOR CUFF SYNDROME [None]
  - SINUSITIS [None]
  - SPINAL COMPRESSION FRACTURE [None]
  - SQUAMOUS CELL CARCINOMA OF SKIN [None]
  - WHIPLASH INJURY [None]
